FAERS Safety Report 6643648-6 (Version None)
Quarter: 2010Q1

REPORT INFORMATION
  Report Type: 
  Country: None (occurrence: None)
  Receive Date: 20100320
  Receipt Date: 20100202
  Transmission Date: 20100710
  Serious: No
  Sender: FDA-Public Use
  Company Number: US-JNJFOC-20100202064

PATIENT
  Age: 42 Year
  Sex: Male
  Weight: 107.96 kg

DRUGS (2)
  1. INVEGA [Suspect]
     Indication: BIPOLAR DISORDER
     Dosage: 3 MG IN THE AM AND 6 MG AT NIGHT
     Route: 048
  2. INVEGA [Suspect]
     Dosage: 3 MG IN THE AM AND 6 MG AT NIGHT
     Route: 048

REACTIONS (2)
  - DYSPNOEA [None]
  - WEIGHT INCREASED [None]
